FAERS Safety Report 15725401 (Version 1)
Quarter: 2018Q4

REPORT INFORMATION
  Report Type: Spontaneous
  Country: GB (occurrence: GB)
  Receive Date: 20181215
  Receipt Date: 20181215
  Transmission Date: 20190205
  Serious: Yes (Death, Life-Threatening, Other)
  Sender: FDA-Public Use
  Company Number: GB-UCBSA-2018054415

PATIENT
  Age: 67 Year
  Sex: Male
  Weight: 70 kg

DRUGS (7)
  1. TEICOPLANIN [Suspect]
     Active Substance: TEICOPLANIN
     Indication: INFECTION
     Dosage: UNK
     Route: 051
     Dates: start: 20160427, end: 20160508
  2. ENOXAPARIN [Suspect]
     Active Substance: ENOXAPARIN
     Indication: PRODUCT USED FOR UNKNOWN INDICATION
     Dosage: UNK
     Route: 051
     Dates: start: 20160427, end: 20160508
  3. PARACETAMOL [Suspect]
     Active Substance: ACETAMINOPHEN
     Indication: GENERALISED TONIC-CLONIC SEIZURE
     Dosage: 2000 MG, DAILY
     Route: 051
     Dates: start: 20160427, end: 20160508
  4. KEPPRA [Suspect]
     Active Substance: LEVETIRACETAM
     Indication: GENERALISED TONIC-CLONIC SEIZURE
     Dosage: 1500 MG, DAILY
     Route: 051
     Dates: start: 20160427
  5. SODIUM CHLORIDE. [Concomitant]
     Active Substance: SODIUM CHLORIDE
     Indication: PRODUCT USED FOR UNKNOWN INDICATION
     Route: 042
  6. PHENYTOIN. [Suspect]
     Active Substance: PHENYTOIN
     Indication: GENERALISED TONIC-CLONIC SEIZURE
     Dosage: UNK
     Route: 051
     Dates: start: 20160427, end: 20160508
  7. CIPROFLOXACIN. [Suspect]
     Active Substance: CIPROFLOXACIN
     Indication: INFECTION
     Dosage: 1200 MG, DAILY
     Route: 051
     Dates: start: 20160427, end: 20160508

REACTIONS (11)
  - Dyspnoea [Not Recovered/Not Resolved]
  - Abdominal distension [Not Recovered/Not Resolved]
  - Melaena [Unknown]
  - Depression [Unknown]
  - Crying [Unknown]
  - Gastrointestinal haemorrhage [Fatal]
  - Dysphagia [Not Recovered/Not Resolved]
  - Anxiety [Unknown]
  - Faeces discoloured [Unknown]
  - Abdominal pain [Unknown]
  - Tongue coated [Recovered/Resolved]

NARRATIVE: CASE EVENT DATE: 20160429
